FAERS Safety Report 14183445 (Version 1)
Quarter: 2017Q4

REPORT INFORMATION
  Report Type: Spontaneous
  Country: IT (occurrence: IT)
  Receive Date: 20171113
  Receipt Date: 20171113
  Transmission Date: 20180321
  Serious: Yes (Other)
  Sender: FDA-Public Use
  Company Number: IT-JNJFOC-20171109659

PATIENT
  Age: 68 Year
  Sex: Female

DRUGS (2)
  1. CISAPRIDE [Suspect]
     Active Substance: CISAPRIDE
     Indication: PRODUCT USED FOR UNKNOWN INDICATION
     Route: 065
  2. ALLOPURINOL. [Suspect]
     Active Substance: ALLOPURINOL
     Indication: PRODUCT USED FOR UNKNOWN INDICATION
     Route: 065

REACTIONS (2)
  - Renal failure [Recovered/Resolved]
  - Toxic epidermal necrolysis [Recovered/Resolved]
